FAERS Safety Report 8015971-4 (Version None)
Quarter: 2011Q4

REPORT INFORMATION
  Report Type: 
  Country: None (occurrence: None)
  Receive Date: 20111230
  Receipt Date: 20111220
  Transmission Date: 20120403
  Serious: Yes (Hospitalization)
  Sender: FDA-Public Use
  Company Number: DE-ELI_LILLY_AND_COMPANY-DE201111003996

PATIENT
  Sex: Male
  Weight: 63 kg

DRUGS (6)
  1. CETUXIMAB [Suspect]
     Indication: NON-SMALL CELL LUNG CANCER
     Dosage: 250 MG/M2, UNKNOWN
     Dates: start: 20110920, end: 20111104
  2. CETUXIMAB [Suspect]
     Dosage: 250 MG/M2, UNKNOWN
     Dates: start: 20111121
  3. JONOSTERIL [Concomitant]
     Indication: BLOOD CREATININE ABNORMAL
     Dosage: 1000 ML, UNK
     Dates: start: 20111110
  4. FUROSEMIDE [Concomitant]
     Indication: BLOOD CREATININE ABNORMAL
     Dosage: 40 MG, UNK
     Dates: start: 20111110
  5. DOCETAXEL [Suspect]
     Indication: NON-SMALL CELL LUNG CANCER
     Dosage: 75 MG/M2, UNKNOWN
     Dates: start: 20111104, end: 20111104
  6. GEMCITABINE HYDROCHLORIDE [Suspect]
     Indication: NON-SMALL CELL LUNG CANCER
     Dosage: 1000 MG/M2, UNKNOWN
     Dates: start: 20110920, end: 20111019

REACTIONS (1)
  - PNEUMONIA [None]
